FAERS Safety Report 15017640 (Version 1)
Quarter: 2018Q2

REPORT INFORMATION
  Report Type: Spontaneous
  Country: JP (occurrence: JP)
  Receive Date: 20180615
  Receipt Date: 20180615
  Transmission Date: 20180711
  Serious: Yes (Hospitalization)
  Sender: FDA-Public Use
  Company Number: JP-ASTRAZENECA-2018SE38852

PATIENT
  Age: 71 Year
  Sex: Female
  Weight: 43 kg

DRUGS (20)
  1. VIMPAT [Suspect]
     Active Substance: LACOSAMIDE
     Indication: EPILEPSY
     Route: 048
     Dates: start: 20171122, end: 20171129
  2. VIMPAT [Suspect]
     Active Substance: LACOSAMIDE
     Indication: EPILEPSY
     Route: 048
     Dates: start: 20171218, end: 20171218
  3. KEPPRA [Concomitant]
     Active Substance: LEVETIRACETAM
     Route: 048
     Dates: start: 20171123, end: 20171206
  4. MYSLEE [Concomitant]
     Active Substance: ZOLPIDEM TARTRATE
  5. VIMPAT [Suspect]
     Active Substance: LACOSAMIDE
     Indication: EPILEPSY
     Route: 048
     Dates: start: 20171130, end: 20171217
  6. PHENOBARBITAL SODIUM. [Concomitant]
     Active Substance: PHENOBARBITAL SODIUM
     Route: 042
     Dates: start: 20170116, end: 20170116
  7. BETAMETHASONE. [Concomitant]
     Active Substance: BETAMETHASONE
     Route: 048
     Dates: end: 20171213
  8. VIMPAT [Suspect]
     Active Substance: LACOSAMIDE
     Indication: EPILEPSY
     Route: 048
     Dates: start: 20171122, end: 20171129
  9. VIMPAT [Suspect]
     Active Substance: LACOSAMIDE
     Indication: EPILEPSY
     Route: 048
     Dates: start: 20171218, end: 20171218
  10. CRAVIT [Suspect]
     Active Substance: LEVOFLOXACIN
     Indication: URINARY TRACT INFECTION
     Route: 048
  11. KEPPRA [Concomitant]
     Active Substance: LEVETIRACETAM
     Route: 048
     Dates: start: 20170910, end: 20171110
  12. NEXIUM [Suspect]
     Active Substance: ESOMEPRAZOLE MAGNESIUM
     Indication: PROPHYLAXIS
     Route: 048
     Dates: end: 20171213
  13. KEPPRA [Concomitant]
     Active Substance: LEVETIRACETAM
     Route: 048
     Dates: start: 20170116
  14. DEPAKENE [Concomitant]
     Active Substance: VALPROIC ACID
     Route: 048
     Dates: end: 20171111
  15. HISHIPHAGEN [Concomitant]
  16. KEPPRA [Concomitant]
     Active Substance: LEVETIRACETAM
     Route: 048
     Dates: start: 20170116, end: 20170116
  17. VIMPAT [Suspect]
     Active Substance: LACOSAMIDE
     Indication: EPILEPSY
     Route: 048
     Dates: start: 20171130, end: 20171217
  18. KEPPRA [Concomitant]
     Active Substance: LEVETIRACETAM
     Route: 048
     Dates: start: 20171112, end: 20171122
  19. KEPPRA [Concomitant]
     Active Substance: LEVETIRACETAM
     Route: 048
     Dates: start: 20171111, end: 20171111
  20. ROHYPNOL [Concomitant]
     Active Substance: FLUNITRAZEPAM

REACTIONS (3)
  - Hepatic function abnormal [Recovering/Resolving]
  - Infection [Unknown]
  - Pyrexia [Recovering/Resolving]

NARRATIVE: CASE EVENT DATE: 20171206
